FAERS Safety Report 9356134 (Version 1)
Quarter: 2013Q2

REPORT INFORMATION
  Report Type: Spontaneous
  Country: US (occurrence: US)
  Receive Date: 20130619
  Receipt Date: 20130619
  Transmission Date: 20140414
  Serious: Yes (Hospitalization)
  Sender: FDA-Public Use
  Company Number: US-GLAXOSMITHKLINE-A0790522A

PATIENT
  Age: 53 Year
  Sex: Female
  Weight: 80.3 kg

DRUGS (1)
  1. AVANDIA [Suspect]
     Indication: DIABETES MELLITUS
     Dosage: 4MG PER DAY
     Route: 048
     Dates: start: 200212, end: 20050113

REACTIONS (2)
  - Myocardial infarction [Unknown]
  - Angina unstable [Unknown]
